FAERS Safety Report 19619759 (Version 2)
Quarter: 2021Q3

REPORT INFORMATION
  Report Type: Other
  Country: US (occurrence: US)
  Receive Date: 20210728
  Receipt Date: 20210802
  Transmission Date: 20211014
  Serious: Yes (Death, Hospitalization)
  Sender: FDA-Public Use
  Company Number: US-ROCHE-2855031

PATIENT
  Age: 50 Year
  Sex: Male

DRUGS (1)
  1. OCREVUS [Suspect]
     Active Substance: OCRELIZUMAB
     Indication: RELAPSING MULTIPLE SCLEROSIS
     Dosage: DOT: 02/AUG/2019,16/AUG/2019?LAST DATE OF INFUSION: 20/MAY/2020
     Route: 042

REACTIONS (2)
  - COVID-19 [Unknown]
  - Procedural complication [Fatal]

NARRATIVE: CASE EVENT DATE: 20200919
